FAERS Safety Report 7353046-8 (Version None)
Quarter: 2011Q1

REPORT INFORMATION
  Report Type: 
  Country: None (occurrence: None)
  Receive Date: 20110315
  Receipt Date: 20110304
  Transmission Date: 20110831
  Serious: Yes (Hospitalization)
  Sender: FDA-Public Use
  Company Number: B0698295A

PATIENT
  Age: 51 Year
  Sex: Female
  Weight: 88.6 kg

DRUGS (7)
  1. AVANDIA [Suspect]
     Dosage: 8MG PER DAY
     Route: 048
     Dates: start: 20000101, end: 20090101
  2. PROCARDIA [Concomitant]
  3. CATAPRES [Concomitant]
  4. AMARYL [Concomitant]
  5. PREVACID [Concomitant]
  6. ZOCOR [Concomitant]
  7. LOPRESSOR [Concomitant]

REACTIONS (2)
  - CEREBROVASCULAR ACCIDENT [None]
  - CEREBRAL ISCHAEMIA [None]
